FAERS Safety Report 23078717 (Version 2)
Quarter: 2023Q4

REPORT INFORMATION
  Report Type: Report from Study
  Country: US (occurrence: US)
  Receive Date: 20231018
  Receipt Date: 20231226
  Transmission Date: 20240109
  Serious: Yes (Hospitalization)
  Sender: FDA-Public Use
  Company Number: US-ABBVIE-5453734

PATIENT
  Age: 91 Year
  Sex: Male
  Weight: 74 kg

DRUGS (2)
  1. IMBRUVICA [Suspect]
     Active Substance: IBRUTINIB
     Indication: Waldenstrom^s macroglobulinaemia
     Dosage: FORM STRENGTH 450 MILLIGRAM
     Route: 048
     Dates: start: 202202, end: 20230411
  2. ELIQUIS [Concomitant]
     Active Substance: APIXABAN
     Indication: Renal cyst ruptured
     Dates: start: 20230912, end: 20230921

REACTIONS (1)
  - Renal haemorrhage [Recovered/Resolved]

NARRATIVE: CASE EVENT DATE: 20230919
